FAERS Safety Report 25449501 (Version 5)
Quarter: 2025Q4

REPORT INFORMATION
  Report Type: Report from Study
  Country: CA (occurrence: None)
  Receive Date: 20250618
  Receipt Date: 20251216
  Transmission Date: 20260118
  Serious: Yes (Hospitalization, Other)
  Sender: UCB
  Company Number: CA-UCBSA-2025035810

PATIENT

DRUGS (1)
  1. CERTOLIZUMAB PEGOL [Suspect]
     Active Substance: CERTOLIZUMAB PEGOL
     Indication: Rheumatoid arthritis
     Dosage: 400 MILLIGRAM, EV 2 WEEKS(QOW)

REACTIONS (10)
  - Fall [Recovered/Resolved]
  - Upper limb fracture [Recovered/Resolved]
  - Surgery [Unknown]
  - Syncope [Unknown]
  - Head injury [Unknown]
  - Blood magnesium decreased [Unknown]
  - Blood potassium decreased [Unknown]
  - Renal impairment [Unknown]
  - Postoperative wound infection [Recovered/Resolved]
  - Intentional dose omission [Unknown]
